FAERS Safety Report 16593319 (Version 1)
Quarter: 2019Q3

REPORT INFORMATION
  Report Type: Spontaneous
  Country: JP (occurrence: JP)
  Receive Date: 20190718
  Receipt Date: 20190718
  Transmission Date: 20191004
  Serious: Yes (Death, Hospitalization, Other)
  Sender: FDA-Public Use
  Company Number: JP-FERRINGPH-2019FE04433

PATIENT
  Age: 71 Year
  Sex: Male

DRUGS (6)
  1. BETANIS [Concomitant]
     Active Substance: MIRABEGRON
     Route: 065
  2. TADALAFIL. [Concomitant]
     Active Substance: TADALAFIL
     Route: 065
  3. CASODEX [Concomitant]
     Active Substance: BICALUTAMIDE
     Route: 065
  4. DENOTAS [Concomitant]
     Active Substance: CALCIUM CARBONATE\CHOLECALCIFEROL\MAGNESIUM CARBONATE
     Route: 065
  5. GONAX [Suspect]
     Active Substance: DEGARELIX
     Indication: PROSTATE CANCER
     Dosage: UNK, MONTHLY
     Route: 058
     Dates: start: 20140616
  6. RANMARK [Concomitant]
     Active Substance: DENOSUMAB
     Route: 065

REACTIONS (1)
  - Cerebral haemorrhage [Fatal]

NARRATIVE: CASE EVENT DATE: 20190207
